FAERS Safety Report 10884787 (Version 1)
Quarter: 2015Q1

REPORT INFORMATION
  Report Type: Spontaneous
  Country: US (occurrence: None)
  Receive Date: 20150227
  Receipt Date: 20150227
  Transmission Date: 20150721
  Serious: Yes (Other)
  Sender: FDA-Public Use
  Company Number: None

PATIENT
  Age: 45 Year
  Sex: Female
  Weight: 45.36 kg

DRUGS (6)
  1. MUSCLE RELAXER [Concomitant]
     Active Substance: UNSPECIFIED INGREDIENT
  2. LEVAQUIN [Suspect]
     Active Substance: LEVOFLOXACIN
     Indication: BRONCHITIS
     Dosage: 1 PILL ONCE DAILY --
     Dates: start: 20140226, end: 20140228
  3. LYRICA [Concomitant]
     Active Substance: PREGABALIN
  4. VITAMINS [Concomitant]
     Active Substance: VITAMINS
  5. ADVIL [Concomitant]
     Active Substance: IBUPROFEN
  6. ZANTAC [Concomitant]
     Active Substance: RANITIDINE HYDROCHLORIDE

REACTIONS (11)
  - Headache [None]
  - Nausea [None]
  - Spinal pain [None]
  - Hypoaesthesia [None]
  - Muscular weakness [None]
  - Hot flush [None]
  - Paraesthesia [None]
  - Feeling cold [None]
  - Dizziness [None]
  - Confusional state [None]
  - Back pain [None]

NARRATIVE: CASE EVENT DATE: 20140301
